FAERS Safety Report 6130972-9 (Version None)
Quarter: 2009Q1

REPORT INFORMATION
  Report Type: 
  Country: None (occurrence: None)
  Receive Date: 20090323
  Receipt Date: 20090305
  Transmission Date: 20090719
  Serious: Yes (Hospitalization)
  Sender: FDA-Public Use
  Company Number: 187479ISR

PATIENT
  Age: 82 Year
  Sex: Female

DRUGS (6)
  1. BISOPROLOL FUMARATE [Suspect]
     Indication: HYPERTENSION
     Dosage: 10 MG (10 MG, 1 -2); 10 MG (10 MG, 1 IN 1 D), ORAL
     Route: 048
  2. FOSINOPRIL SODIUM [Suspect]
     Dosage: 20 MG (20 MG, 1 IN 1 D) ORAL
     Route: 048
  3. TRIMETAZIDINE HYDROCHLORIDE [Suspect]
     Indication: ANGINA PECTORIS
     Dosage: 3 DOSAGE FORMS (20 MG, 1 IN 1 D) ORAL
     Route: 048
  4. OMEPRAZOLE [Suspect]
     Indication: OESOPHAGITIS
     Dosage: 1 DOSAGE FORMS (20 MG, 1 IN 1 D) ORAL
     Route: 048
  5. CLONIDINE [Suspect]
     Indication: HYPERTENSION
     Dosage: 0.15 MG (0.15 MG, 1 IN 1 D) ORAL
     Route: 048
  6. AMLODIPINE BESYLATE [Suspect]
     Indication: HYPERTENSION
     Dosage: 1 DOSAGE FORMS (5 MG, 1 IN 1 D) ORAL
     Route: 048

REACTIONS (4)
  - ACUTE CORONARY SYNDROME [None]
  - FALL [None]
  - IRON DEFICIENCY ANAEMIA [None]
  - MICROCYTIC ANAEMIA [None]
